FAERS Safety Report 6096399-3 (Version None)
Quarter: 2009Q1

REPORT INFORMATION
  Report Type: 
  Country: None (occurrence: None)
  Receive Date: 20090227
  Receipt Date: 20081209
  Transmission Date: 20090719
  Serious: No
  Sender: FDA-Public Use
  Company Number: A0759605A

PATIENT
  Age: 30 Year
  Sex: Male

DRUGS (4)
  1. LAMICTAL [Suspect]
     Indication: EPILEPSY
     Dosage: 200MG TWICE PER DAY
     Route: 048
     Dates: start: 20080714
  2. LYRICA [Concomitant]
  3. FISH OIL [Concomitant]
  4. ONE A DAY [Concomitant]

REACTIONS (2)
  - ACCIDENTAL OVERDOSE [None]
  - RASH VESICULAR [None]
